FAERS Safety Report 7552062-0 (Version None)
Quarter: 2011Q2

REPORT INFORMATION
  Report Type: 
  Country: None (occurrence: None)
  Receive Date: 20110609
  Receipt Date: 20110525
  Transmission Date: 20111010
  Serious: Yes (Other)
  Sender: FDA-Public Use
  Company Number: AUR-APL-2011-01913

PATIENT

DRUGS (4)
  1. WARFARIN SODIUM [Concomitant]
  2. SIMVASTATIN [Suspect]
     Indication: HYPERLIPIDAEMIA
     Dosage: 20MG-ORAL
     Route: 048
     Dates: start: 20101201, end: 20110301
  3. ACETYLSALICYLIC ACID SRT [Concomitant]
  4. VERAPAMIL HCL [Concomitant]

REACTIONS (1)
  - DYSPNOEA EXERTIONAL [None]
